FAERS Safety Report 7973939-8 (Version None)
Quarter: 2011Q4

REPORT INFORMATION
  Report Type: 
  Country: None (occurrence: None)
  Receive Date: 20111213
  Receipt Date: 20111205
  Transmission Date: 20120403
  Serious: Yes (Hospitalization, Other)
  Sender: FDA-Public Use
  Company Number: JP-CEPHALON-2011002876

PATIENT
  Sex: Male
  Weight: 58 kg

DRUGS (5)
  1. GRANISETRON HCL [Concomitant]
     Dates: start: 20110127, end: 20110407
  2. BENDAMUSTINE HCL [Suspect]
     Indication: B-CELL LYMPHOMA
     Route: 042
     Dates: start: 20110127, end: 20110407
  3. SULFAMETHOXAZOLE AND TRIMETHOPRIM [Concomitant]
     Dates: start: 20110128, end: 20110129
  4. ATORVASTATIN [Concomitant]
  5. BENZBROMARONE [Concomitant]
     Dates: start: 20110114

REACTIONS (8)
  - HEPATITIS B [None]
  - SEPSIS [None]
  - HYPOKALAEMIA [None]
  - NEUTROPHIL COUNT DECREASED [None]
  - WHITE BLOOD CELL COUNT DECREASED [None]
  - LYMPHOCYTE COUNT DECREASED [None]
  - PLATELET COUNT DECREASED [None]
  - NAUSEA [None]
